FAERS Safety Report 10557941 (Version 1)
Quarter: 2014Q4

REPORT INFORMATION
  Report Type: Spontaneous
  Country: GB (occurrence: GB)
  Receive Date: 20141031
  Receipt Date: 20141031
  Transmission Date: 20150529
  Serious: Yes (Other)
  Sender: FDA-Public Use
  Company Number: GB-PFIZER INC-2014296536

PATIENT
  Age: 76 Year
  Sex: Female

DRUGS (1)
  1. SUNITINIB MALATE [Suspect]
     Active Substance: SUNITINIB MALATE
     Indication: GASTROINTESTINAL STROMAL TUMOUR
     Dosage: UNK

REACTIONS (5)
  - Confusional state [Unknown]
  - Blood thyroid stimulating hormone increased [Unknown]
  - Inappropriate antidiuretic hormone secretion [Unknown]
  - Peripheral swelling [Unknown]
  - Lethargy [Unknown]
